FAERS Safety Report 4344552-9 (Version None)
Quarter: 2004Q2

REPORT INFORMATION
  Report Type: 
  Country: None (occurrence: None)
  Receive Date: 20040422
  Receipt Date: 20040420
  Transmission Date: 20050107
  Serious: Yes (Hospitalization)
  Sender: FDA-Public Use
  Company Number: AU-MERCK-0404AUS00043

PATIENT
  Age: 70 Year
  Sex: Male

DRUGS (6)
  1. FOSAMAX [Suspect]
     Route: 048
     Dates: end: 20021214
  2. ASPIRIN [Concomitant]
     Route: 065
  3. CELECOXIB [Suspect]
     Route: 048
     Dates: end: 20021214
  4. ERYTHROMYCIN [Suspect]
     Indication: UPPER RESPIRATORY TRACT INFECTION
     Route: 048
     Dates: start: 20021213, end: 20021214
  5. INSULIN, BIPHASIC ISOPHANE [INJECTION] [Concomitant]
     Route: 065
  6. OMEPRAZOLE [Suspect]
     Route: 048
     Dates: end: 20021214

REACTIONS (6)
  - DYSPNOEA [None]
  - EYE SWELLING [None]
  - PERIORBITAL OEDEMA [None]
  - RASH [None]
  - SWELLING FACE [None]
  - TACHYCARDIA [None]
